FAERS Safety Report 8517019-1 (Version None)
Quarter: 2012Q3

REPORT INFORMATION
  Report Type: 
  Country: None (occurrence: None)
  Receive Date: 20120706
  Receipt Date: 20120621
  Transmission Date: 20120928
  Serious: Yes (Other)
  Sender: FDA-Public Use
  Company Number: 2012-002344

PATIENT
  Age: 74 Year
  Sex: Female

DRUGS (1)
  1. RISEDRONATE SODIUM [Suspect]
     Indication: OSTEOPOROSIS
     Dosage: ,, ORAL
     Route: 048

REACTIONS (3)
  - FALL [None]
  - ATYPICAL FEMUR FRACTURE [None]
  - BONE PAIN [None]
